FAERS Safety Report 9322710 (Version 3)
Quarter: 2014Q1

REPORT INFORMATION
  Report Type: Spontaneous
  Country: US (occurrence: US)
  Receive Date: 20130601
  Receipt Date: 20140110
  Transmission Date: 20141002
  Serious: Yes (Hospitalization, Disabling, Other)
  Sender: FDA-Public Use
  Company Number: US-ASTRAZENECA-2013SE38562

PATIENT
  Age: 60 Year
  Sex: Male
  Weight: 113.4 kg

DRUGS (12)
  1. NEXIUM [Suspect]
     Indication: GASTRIC ULCER
     Route: 048
     Dates: start: 200603, end: 200611
  2. NEXIUM [Suspect]
     Indication: GASTRIC ULCER
     Dosage: EVERY MORNING
     Route: 048
  3. PRILOSEC OTC [Suspect]
     Indication: GASTRIC ULCER
     Dosage: ONCE DAILY
     Route: 048
     Dates: start: 200611
  4. PREVACID [Suspect]
     Route: 065
     Dates: start: 200603
  5. TERAZOSIN [Concomitant]
     Indication: HYPERTENSION
  6. MECLIZINE [Concomitant]
     Indication: DIZZINESS
  7. METOPROLOL [Concomitant]
     Indication: BLOOD PRESSURE ABNORMAL
     Route: 048
  8. LISINOPRIL [Concomitant]
     Indication: BLOOD PRESSURE ABNORMAL
     Route: 048
  9. FINASTERIDE [Concomitant]
     Indication: PROSTATIC DISORDER
  10. ASPIRIN [Concomitant]
     Indication: ANTICOAGULANT THERAPY
  11. SIMVASTATIN [Concomitant]
     Indication: BLOOD CHOLESTEROL ABNORMAL
  12. BENICAR [Concomitant]
     Indication: BLOOD PRESSURE ABNORMAL

REACTIONS (9)
  - Radius fracture [Unknown]
  - Wrist fracture [Unknown]
  - Neoplasm malignant [Unknown]
  - Fall [Unknown]
  - Tinnitus [Unknown]
  - Chest pain [Unknown]
  - Osteoporosis [Unknown]
  - Bone disorder [Unknown]
  - Multiple fractures [Unknown]
